FAERS Safety Report 11374277 (Version 1)
Quarter: 2015Q3

REPORT INFORMATION
  Report Type: Report from Study
  Country: US (occurrence: US)
  Receive Date: 20150812
  Receipt Date: 20150812
  Transmission Date: 20151125
  Serious: Yes (Hospitalization)
  Sender: FDA-Public Use
  Company Number: US-BAXALTA-2015BLT000973

PATIENT
  Sex: Female

DRUGS (2)
  1. HUMAN NORMAL IMMUNOGLOBULIN; LIQUID [Suspect]
     Active Substance: HUMAN IMMUNOGLOBULIN G
     Indication: PRIMARY IMMUNODEFICIENCY SYNDROME
  2. HUMAN NORMAL IMMUNOGLOBULIN; LIQUID [Suspect]
     Active Substance: HUMAN IMMUNOGLOBULIN G
     Indication: SELECTIVE IGG SUBCLASS DEFICIENCY
     Route: 042

REACTIONS (6)
  - Body temperature increased [Recovered/Resolved]
  - Vomiting [Recovered/Resolved]
  - Pneumonia [Recovered/Resolved]
  - Headache [Recovered/Resolved]
  - Device occlusion [Recovered/Resolved]
  - Malaise [Recovered/Resolved]
